FAERS Safety Report 20704795 (Version 1)
Quarter: 2022Q2

REPORT INFORMATION
  Report Type: Spontaneous
  Country: US (occurrence: None)
  Receive Date: 20220412
  Receipt Date: 20220412
  Transmission Date: 20220721
  Serious: Yes (Death)
  Sender: FDA-Public Use
  Company Number: None

PATIENT
  Age: 57 Year
  Sex: Female

DRUGS (3)
  1. PROMACTA [Suspect]
     Active Substance: ELTROMBOPAG OLAMINE
     Indication: Myelodysplastic syndrome
     Dosage: 50MG QD THEN ORAL?
     Route: 048
     Dates: start: 20211123, end: 20220204
  2. SIMETHICONE (DIMETHICONE) [Concomitant]
     Active Substance: DIMETHICONE
  3. LORAZEPAM [Concomitant]
     Active Substance: LORAZEPAM

REACTIONS (5)
  - Cerebral haemorrhage [None]
  - Febrile neutropenia [None]
  - Muscular weakness [None]
  - Paraesthesia [None]
  - Mental status changes [None]

NARRATIVE: CASE EVENT DATE: 20220224
